FAERS Safety Report 8854225 (Version 1)
Quarter: 2012Q4

REPORT INFORMATION
  Report Type: Spontaneous
  Country: US (occurrence: None)
  Receive Date: 20121022
  Receipt Date: 20121022
  Transmission Date: 20130627
  Serious: Yes (Death)
  Sender: FDA-Public Use
  Company Number: None

PATIENT
  Age: 59 Year
  Sex: Male

DRUGS (7)
  1. REVLIMID [Suspect]
     Dosage: 10 mg qd x 21/28 days by mouth
     Route: 048
     Dates: start: 201107, end: 201204
  2. DEXAMETHASONE [Concomitant]
  3. AMLODIPINE [Concomitant]
  4. METOPROLOL [Concomitant]
  5. INSULIN [Concomitant]
  6. POTASSIUM [Concomitant]
  7. CALCITRIOL [Concomitant]

REACTIONS (2)
  - Oedema peripheral [None]
  - Neuropathy peripheral [None]
